FAERS Safety Report 7831625-9 (Version None)
Quarter: 2011Q4

REPORT INFORMATION
  Report Type: 
  Country: None (occurrence: None)
  Receive Date: 20111021
  Receipt Date: 20111012
  Transmission Date: 20120403
  Serious: Yes (Other)
  Sender: FDA-Public Use
  Company Number: US-JNJFOC-20110901978

PATIENT
  Sex: Male
  Weight: 97.98 kg

DRUGS (17)
  1. REMICADE [Suspect]
     Indication: BACK PAIN
     Route: 042
     Dates: start: 20110628
  2. REMICADE [Suspect]
     Route: 042
     Dates: start: 20110610
  3. REMICADE [Suspect]
     Indication: ARTHRALGIA
     Route: 042
     Dates: start: 20110810
  4. REMICADE [Suspect]
     Route: 042
     Dates: start: 20110610
  5. REMICADE [Suspect]
     Route: 042
     Dates: start: 20110810
  6. REMICADE [Suspect]
     Route: 042
     Dates: start: 20110628
  7. ATENOLOL [Concomitant]
     Indication: BLOOD PRESSURE
     Route: 048
     Dates: start: 20040101
  8. REMICADE [Suspect]
     Route: 042
     Dates: start: 20110628
  9. FLUOCINONIDE [Concomitant]
     Indication: PSORIASIS
     Route: 061
     Dates: start: 20100101
  10. SIMVASTATIN [Concomitant]
     Indication: BLOOD CHOLESTEROL
     Route: 048
     Dates: start: 20040101
  11. REMICADE [Suspect]
     Route: 042
     Dates: start: 20110810
  12. OMEPRAZOLE [Concomitant]
     Indication: GASTROOESOPHAGEAL REFLUX DISEASE
     Route: 048
     Dates: start: 20090101
  13. TRAMADOL HCL [Concomitant]
     Indication: PAIN
     Route: 048
     Dates: start: 20090101
  14. REMICADE [Suspect]
     Indication: ANKYLOSING SPONDYLITIS
     Route: 042
     Dates: start: 20110610
  15. NAPROXEN [Concomitant]
     Indication: RHEUMATOID ARTHRITIS
     Route: 048
     Dates: start: 20060101
  16. DIOVAN [Concomitant]
     Indication: BLOOD PRESSURE
     Route: 048
     Dates: start: 20040101
  17. TRAZODONE HYDROCHLORIDE [Concomitant]
     Indication: SLEEP DISORDER
     Route: 048
     Dates: start: 20060101

REACTIONS (3)
  - OROMANDIBULAR DYSTONIA [None]
  - MOUTH ULCERATION [None]
  - PSORIASIS [None]
